FAERS Safety Report 7813695-7 (Version None)
Quarter: 2011Q4

REPORT INFORMATION
  Report Type: 
  Country: None (occurrence: None)
  Receive Date: 20111014
  Receipt Date: 20111003
  Transmission Date: 20120403
  Serious: Yes (Other)
  Sender: FDA-Public Use
  Company Number: US-ELI_LILLY_AND_COMPANY-US201103001719

PATIENT
  Sex: Male
  Weight: 70.748 kg

DRUGS (14)
  1. CALCIUM +VIT D [Concomitant]
     Dosage: UNK
  2. FORTEO [Suspect]
     Dosage: 20 UG, QD
  3. FORTEO [Suspect]
     Indication: OSTEOPOROSIS
     Dosage: 20 UG, DAILY (1/D)
     Dates: start: 20101228
  4. FORTEO [Suspect]
     Dosage: 20 UG, QD
  5. HYDROMORPHONE HCL [Concomitant]
     Dosage: UNK, PRN
  6. GLYBURIDE [Concomitant]
     Dosage: UNK
  7. AMLODIPINE [Concomitant]
     Dosage: UNK, QD
  8. LISINOPRIL [Concomitant]
     Dosage: UNK, QD
  9. FINASTERIDE [Concomitant]
     Dosage: UNK, QD
  10. VITAMIN D [Concomitant]
     Dosage: UNK
  11. CLARITIN [Concomitant]
     Dosage: UNK
  12. BYSTOLIC [Concomitant]
     Dosage: UNK
  13. METFORMIN HYDROCHLORIDE [Concomitant]
     Dosage: UNK, QD
  14. IRON [Concomitant]

REACTIONS (3)
  - SLEEP DISORDER DUE TO A GENERAL MEDICAL CONDITION [None]
  - MULTIPLE MYELOMA [None]
  - ARTHRALGIA [None]
